FAERS Safety Report 6813924-2 (Version None)
Quarter: 2010Q3

REPORT INFORMATION
  Report Type: 
  Country: None (occurrence: None)
  Receive Date: 20100702
  Receipt Date: 20100624
  Transmission Date: 20110219
  Serious: Yes (Other)
  Sender: FDA-Public Use
  Company Number: US-RANBAXY-2010US-35080

PATIENT

DRUGS (3)
  1. SERTRALINE [Suspect]
     Indication: OBSESSIVE-COMPULSIVE DISORDER
     Dosage: 50 MG/DAY
     Route: 065
  2. SERTRALINE [Suspect]
     Dosage: 75 MG/DAY
     Route: 065
  3. METHYLPHENIDATE [Concomitant]
     Indication: PRODUCT USED FOR UNKNOWN INDICATION
     Dosage: UN, UNK
     Route: 065

REACTIONS (2)
  - ENURESIS [None]
  - QUALITY OF LIFE DECREASED [None]
